FAERS Safety Report 4472122-0 (Version None)
Quarter: 2004Q4

REPORT INFORMATION
  Report Type: 
  Country: None (occurrence: None)
  Receive Date: 20041008
  Receipt Date: 20040929
  Transmission Date: 20050328
  Serious: Yes (Death, Hospitalization, Other)
  Sender: FDA-Public Use
  Company Number: 2004067531

PATIENT
  Age: 42 Year
  Sex: Male
  Weight: 117.4816 kg

DRUGS (14)
  1. NEURONTIN [Suspect]
     Indication: BACK PAIN
     Dosage: 600 MG (300 MG, 2 IN 1 D), ORAL
     Route: 048
     Dates: start: 20000225
  2. BENADRYL [Suspect]
     Indication: ILL-DEFINED DISORDER
     Dosage: ORAL
     Route: 048
  3. OXYCODONE HCL [Suspect]
     Indication: BACK PAIN
     Dosage: 1-3 TABLETS Q12H, ORAL
     Route: 048
     Dates: start: 20020829
  4. HYDROCODONE (HYDROCODONE) [Suspect]
     Indication: BACK PAIN
     Dosage: 1-2 EVERY 4-6 HOURS (10 MG), ORAL
     Route: 048
  5. ZOLPIDEM TARTRATE [Suspect]
     Indication: INSOMNIA
     Dosage: 10 MG (10 MG , 1 IN 1 D), ORAL
     Route: 048
  6. CITALOPRAM HYDROBROMIDE (CITALOPRAM HYDROBROMIDE) [Suspect]
     Indication: DEPRESSION
     Dosage: 80 MG (80 MG, 1 IN 1 D), ORAL
     Route: 048
  7. AMITRIPTYLINE HYDROCHLORIDE [Concomitant]
  8. FENTANYL [Concomitant]
  9. CYCLOBENZAPRINE HYDROCHLORIDE [Concomitant]
  10. BUPROPION HYDROCHLORIDCE (BUPROPION HYDRCHLORIDE) [Concomitant]
  11. QUININE SULFATE (QUININE DULFAE0 [Concomitant]
  12. SERTRALINE HCL [Concomitant]
  13. TRAZODONE HCL [Concomitant]
  14. HYDROXYZINE EMBONATE (HYDROXYZINE EMBONATE) [Concomitant]

REACTIONS (33)
  - ACCIDENT [None]
  - ALCOHOL USE [None]
  - ANXIETY [None]
  - ATHEROSCLEROSIS [None]
  - BACK PAIN [None]
  - BRAIN OEDEMA [None]
  - BURNING SENSATION [None]
  - CARDIO-RESPIRATORY ARREST [None]
  - CARDIOMEGALY [None]
  - COMA [None]
  - CORONARY ARTERY ATHEROSCLEROSIS [None]
  - DRUG ABUSER [None]
  - DRUG INTERACTION [None]
  - DRUG LEVEL ABOVE THERAPEUTIC [None]
  - DRUG SCREEN POSITIVE [None]
  - EXCORIATION [None]
  - FEELING ABNORMAL [None]
  - HAEMATEMESIS [None]
  - HEPATIC STEATOSIS [None]
  - HYPERTENSIVE HEART DISEASE [None]
  - HYPOAESTHESIA [None]
  - INTENTIONAL SELF-INJURY [None]
  - LACERATION [None]
  - MAJOR DEPRESSION [None]
  - MUSCLE SPASMS [None]
  - PAIN [None]
  - PAIN EXACERBATED [None]
  - PULMONARY OEDEMA [None]
  - RENAL CYST [None]
  - SLEEP DISORDER DUE TO GENERAL MEDICAL CONDITION, INSOMNIA TYPE [None]
  - SNORING [None]
  - SUICIDAL IDEATION [None]
  - THERAPY NON-RESPONDER [None]
